FAERS Safety Report 9746188 (Version 1)
Quarter: 2013Q4

REPORT INFORMATION
  Report Type: Spontaneous
  Country: GB (occurrence: GB)
  Receive Date: 20131211
  Receipt Date: 20131211
  Transmission Date: 20140711
  Serious: Yes (Death, Congenital Anomaly)
  Sender: FDA-Public Use
  Company Number: GB-TEVA-449755ISR

PATIENT
  Age: 5 Month
  Sex: Female

DRUGS (2)
  1. CITALOPRAM [Suspect]
     Indication: DEPRESSION
     Dosage: LATER REDUCED TO A LESSER DOSE
     Route: 064
     Dates: start: 20040101
  2. CO-CODAMOL [Concomitant]

REACTIONS (5)
  - Congenital diaphragmatic eventration [Fatal]
  - Pulmonary hypoplasia [Unknown]
  - Hand deformity [Unknown]
  - Skin swelling [Unknown]
  - Cutis laxa [Unknown]
